FAERS Safety Report 8846424 (Version 3)
Quarter: 2012Q4

REPORT INFORMATION
  Report Type: 
  Country: GR (occurrence: GR)
  Receive Date: 20121017
  Receipt Date: 20121031
  Transmission Date: 20130627
  Serious: Yes (Hospitalization, Other)
  Sender: FDA-Public Use
  Company Number: GR-AMGEN-GRCSP2012063397

PATIENT
  Age: 75 Year
  Sex: Female
  Weight: 80 kg

DRUGS (4)
  1. PROLIA [Suspect]
     Indication: OSTEOPOROSIS
     Dosage: 60 mg, one time dose
     Route: 058
     Dates: start: 20120406
  2. LIPITOR [Concomitant]
     Dosage: 10 mg, UNK
  3. IDEOS [Concomitant]
     Dosage: UNK
  4. HEPARIN [Concomitant]
     Indication: HIP ARTHROPLASTY
     Dosage: UNK
     Route: 058
     Dates: start: 20120607, end: 20120707

REACTIONS (4)
  - Hip arthroplasty [Unknown]
  - Pain [Not Recovered/Not Resolved]
  - Hypersensitivity [Not Recovered/Not Resolved]
  - Erythema [Not Recovered/Not Resolved]
